FAERS Safety Report 7149702-7 (Version None)
Quarter: 2010Q4

REPORT INFORMATION
  Report Type: 
  Country: None (occurrence: None)
  Receive Date: 20101210
  Receipt Date: 20101201
  Transmission Date: 20110411
  Serious: Yes (Other)
  Sender: FDA-Public Use
  Company Number: US-BIOGENIDEC-2010BI017318

PATIENT
  Age: 36 Year
  Sex: Female

DRUGS (1)
  1. TYSABRI [Suspect]
     Indication: MULTIPLE SCLEROSIS
     Route: 042
     Dates: start: 20080724, end: 20100430

REACTIONS (5)
  - BRONCHOPLEURAL FISTULA [None]
  - FALL [None]
  - FUNGAL INFECTION [None]
  - HAEMOPTYSIS [None]
  - PNEUMONIA VIRAL [None]
